FAERS Safety Report 19841135 (Version 1)
Quarter: 2021Q3

REPORT INFORMATION
  Report Type: Other
  Country: US (occurrence: US)
  Receive Date: 20210916
  Receipt Date: 20210916
  Transmission Date: 20211014
  Serious: No
  Sender: FDA-Public Use
  Company Number: US-LEADIANT BIOSCIENCES INC-2021STPI000104

PATIENT
  Sex: Male

DRUGS (3)
  1. GLEOSTINE [Concomitant]
     Active Substance: LOMUSTINE
     Indication: PRODUCT USED FOR UNKNOWN INDICATION
     Dosage: 220 MG ON DAY 1 OF EACH 42?DAY CYCLE
  2. ONDANSETRON [Concomitant]
     Active Substance: ONDANSETRON
     Indication: PRODUCT USED FOR UNKNOWN INDICATION
  3. MATULANE [Suspect]
     Active Substance: PROCARBAZINE HYDROCHLORIDE
     Indication: BRAIN NEOPLASM MALIGNANT
     Dosage: 100 MILLIGRAM, DAILY, DAYS 8?21, EVERY 42?DAY CYCLE
     Route: 048
     Dates: start: 20210306

REACTIONS (2)
  - Platelet count decreased [Unknown]
  - Nausea [Unknown]
